FAERS Safety Report 6172507-0 (Version None)
Quarter: 2009Q2

REPORT INFORMATION
  Report Type: 
  Country: None (occurrence: None)
  Receive Date: 20090427
  Receipt Date: 20090414
  Transmission Date: 20091009
  Serious: Yes (Other)
  Sender: FDA-Public Use
  Company Number: 2009AL001665

PATIENT
  Age: 61 Year
  Sex: Female

DRUGS (4)
  1. GABAPENTIN [Suspect]
     Indication: TRIGEMINAL NEURALGIA
     Dosage: 300 MG; TID; PO
     Route: 048
     Dates: start: 20050628
  2. LYRICA [Concomitant]
  3. PERINDOPRIL [Concomitant]
  4. AMLODIPINE [Concomitant]

REACTIONS (2)
  - MUSCLE SPASMS [None]
  - MUSCLE TWITCHING [None]
